FAERS Safety Report 4954640-1 (Version None)
Quarter: 2006Q1

REPORT INFORMATION
  Report Type: 
  Country: None (occurrence: None)
  Receive Date: 20060327
  Receipt Date: 20060313
  Transmission Date: 20060701
  Serious: Yes (Hospitalization)
  Sender: FDA-Public Use
  Company Number: JP-ROCHE-440344

PATIENT
  Age: 12 Year
  Sex: Female

DRUGS (1)
  1. TAMIFLU [Suspect]
     Indication: INFLUENZA
     Route: 048
     Dates: start: 20060121, end: 20060121

REACTIONS (5)
  - DIZZINESS [None]
  - DRUG HYPERSENSITIVITY [None]
  - ENTEROCOLITIS HAEMORRHAGIC [None]
  - HAEMATOCHEZIA [None]
  - NAUSEA [None]
